FAERS Safety Report 17052114 (Version 2)
Quarter: 2020Q1

REPORT INFORMATION
  Report Type: Report from Study
  Country: US (occurrence: US)
  Receive Date: 20191120
  Receipt Date: 20200103
  Transmission Date: 20200409
  Serious: Yes (Hospitalization)
  Sender: FDA-Public Use
  Company Number: US-ROCHE-2469703

PATIENT
  Sex: Female
  Weight: 70.37 kg

DRUGS (3)
  1. METHOTREXATE. [Concomitant]
     Active Substance: METHOTREXATE
  2. RITUXAN [Suspect]
     Active Substance: RITUXIMAB
     Indication: TAKAYASU^S ARTERITIS
     Route: 042
     Dates: start: 20140120
  3. PREDNISONE. [Concomitant]
     Active Substance: PREDNISONE

REACTIONS (3)
  - Pneumonitis [Unknown]
  - Intentional product use issue [Unknown]
  - Off label use [Unknown]
